FAERS Safety Report 4365215-X (Version None)
Quarter: 2004Q2

REPORT INFORMATION
  Report Type: 
  Country: None (occurrence: None)
  Receive Date: 20040525
  Receipt Date: 20040412
  Transmission Date: 20050107
  Serious: No
  Sender: FDA-Public Use
  Company Number: PHEH2004US03274

PATIENT
  Age: 87 Year
  Sex: Male

DRUGS (2)
  1. ZELNORM [Suspect]
     Indication: CONSTIPATION
     Dosage: 3 MG, QOD, UNK
     Dates: start: 20031101
  2. SYNTHROID [Concomitant]

REACTIONS (2)
  - PRURITUS [None]
  - RASH PRURITIC [None]
